FAERS Safety Report 6688881-2 (Version None)
Quarter: 2010Q2

REPORT INFORMATION
  Report Type: 
  Country: None (occurrence: None)
  Receive Date: 20100413
  Receipt Date: 20100409
  Transmission Date: 20101027
  Serious: Yes (Hospitalization)
  Sender: FDA-Public Use
  Company Number: 2010SP016098

PATIENT
  Age: 18 Month
  Sex: Male
  Weight: 13.4 kg

DRUGS (2)
  1. CELESTONE [Suspect]
     Indication: LARYNGITIS
     Dosage: 140 GTT; QD; PO
     Route: 048
     Dates: start: 20091221, end: 20091223
  2. MAXILASE [Concomitant]

REACTIONS (6)
  - AGITATION [None]
  - CRYING [None]
  - HYPERTONIA [None]
  - MUSCULOSKELETAL STIFFNESS [None]
  - SCREAMING [None]
  - STARING [None]
